FAERS Safety Report 25630991 (Version 1)
Quarter: 2025Q3

REPORT INFORMATION
  Report Type: Spontaneous
  Country: US (occurrence: US)
  Receive Date: 20250801
  Receipt Date: 20250801
  Transmission Date: 20251021
  Serious: No
  Sender: ACCORD
  Company Number: US-Accord-447845

PATIENT
  Sex: Male
  Weight: 78.02 kg

DRUGS (1)
  1. DOXAZOSIN [Suspect]
     Active Substance: DOXAZOSIN MESYLATE
     Indication: Benign prostatic hyperplasia

REACTIONS (2)
  - Weight decreased [Unknown]
  - Orthostatic hypotension [Unknown]
